FAERS Safety Report 11227301 (Version 1)
Quarter: 2015Q2

REPORT INFORMATION
  Report Type: Spontaneous
  Country: AT (occurrence: AT)
  Receive Date: 20150630
  Receipt Date: 20150630
  Transmission Date: 20150821
  Serious: Yes (Hospitalization)
  Sender: FDA-Public Use
  Company Number: AT-ROCHE-1600947

PATIENT
  Age: 15 Year
  Sex: Male

DRUGS (3)
  1. XOLAIR [Suspect]
     Active Substance: OMALIZUMAB
     Indication: ASTHMA
     Route: 065
     Dates: start: 201202
  2. ZOVIRAX [Concomitant]
     Active Substance: ACYCLOVIR
  3. UNASYN (SULTAMICILLIN TOSILATE) [Concomitant]

REACTIONS (2)
  - Condition aggravated [Unknown]
  - Herpes virus infection [Unknown]
